FAERS Safety Report 6194359-5 (Version None)
Quarter: 2009Q2

REPORT INFORMATION
  Report Type: 
  Country: None (occurrence: None)
  Receive Date: 20090519
  Receipt Date: 20090514
  Transmission Date: 20091009
  Serious: Yes (Hospitalization)
  Sender: FDA-Public Use
  Company Number: FR-EISAI INC.-E2090-00547-SPO-FR

PATIENT
  Sex: Female
  Weight: 48 kg

DRUGS (3)
  1. ZONEGRAN [Suspect]
     Indication: EPILEPSY
     Route: 048
     Dates: start: 20070120
  2. TEGRETOL [Concomitant]
     Indication: EPILEPSY
     Route: 048
  3. GARDENAL [Concomitant]
     Indication: EPILEPSY
     Route: 048

REACTIONS (1)
  - HODGKIN'S DISEASE NODULAR SCLEROSIS STAGE UNSPECIFIED [None]
